FAERS Safety Report 6814399-X (Version None)
Quarter: 2010Q3

REPORT INFORMATION
  Report Type: 
  Country: None (occurrence: None)
  Receive Date: 20100702
  Receipt Date: 20100629
  Transmission Date: 20110219
  Serious: Yes (Other)
  Sender: FDA-Public Use
  Company Number: JP-SANOFI-AVENTIS-2010SA029988

PATIENT
  Age: 70 Year
  Sex: Female

DRUGS (17)
  1. OXALIPLATIN [Suspect]
     Indication: LARGE INTESTINE CARCINOMA
     Route: 041
     Dates: start: 20100309, end: 20100309
  2. OXALIPLATIN [Suspect]
     Route: 041
     Dates: start: 20100511, end: 20100511
  3. AVASTIN [Suspect]
     Indication: LARGE INTESTINE CARCINOMA
     Route: 041
  4. AVASTIN [Suspect]
     Route: 041
  5. CALCIUM LEVOFOLINATE [Suspect]
     Indication: LARGE INTESTINE CARCINOMA
     Route: 041
  6. CALCIUM LEVOFOLINATE [Suspect]
     Route: 041
  7. FLUOROURACIL [Concomitant]
     Route: 040
     Dates: start: 20100309, end: 20100309
  8. FLUOROURACIL [Concomitant]
     Route: 041
     Dates: start: 20100309, end: 20100309
  9. FLUOROURACIL [Concomitant]
     Route: 040
  10. FLUOROURACIL [Concomitant]
     Route: 041
  11. KYTRIL [Concomitant]
     Dates: start: 20100323
  12. GRANISETRON HCL [Concomitant]
     Dates: start: 20100309, end: 20100309
  13. DEXAMETHASONE SODIUM PHOSPHATE [Concomitant]
     Dates: start: 20100309
  14. POLARAMINE [Concomitant]
     Dates: start: 20100309
  15. PRAVASTATIN SODIUM [Concomitant]
     Dates: start: 20080101
  16. MAGNESIUM OXIDE [Concomitant]
  17. RAMELTEON [Concomitant]

REACTIONS (1)
  - HYPERSENSITIVITY [None]
